FAERS Safety Report 8695898 (Version 4)
Quarter: 2013Q4

REPORT INFORMATION
  Report Type: Spontaneous
  Country: US (occurrence: US)
  Receive Date: 20120801
  Receipt Date: 20131031
  Transmission Date: 20140711
  Serious: Yes (Hospitalization)
  Sender: FDA-Public Use
  Company Number: US-MSD-1207USA011428

PATIENT
  Age: 76 Year
  Sex: Female

DRUGS (18)
  1. ZOCOR [Suspect]
     Dosage: UNK
     Route: 048
  2. PRADAXA [Suspect]
     Route: 048
  3. CONTALGIN [Concomitant]
  4. DIGOXIN [Concomitant]
  5. DUOVENT [Concomitant]
  6. FURIX [Concomitant]
  7. KALEORID [Concomitant]
  8. LOSARTAN POTASSIUM [Concomitant]
  9. OXAPAX [Concomitant]
  10. PAMOL [Concomitant]
  11. PREDNISOLON [Concomitant]
  12. SERETIDE [Concomitant]
  13. SERTRALINE HYDROCHLORIDE [Concomitant]
  14. SPIRIVA [Concomitant]
  15. STILNOCT [Concomitant]
  16. BRICANYL [Concomitant]
  17. BERODUAL [Concomitant]
  18. ISOPTIN RETARD [Concomitant]

REACTIONS (3)
  - Gastric ulcer [Unknown]
  - Abdominal pain upper [Unknown]
  - Iron deficiency anaemia [Unknown]
